FAERS Safety Report 4309476-1 (Version None)
Quarter: 2004Q1

REPORT INFORMATION
  Report Type: 
  Country: None (occurrence: None)
  Receive Date: 20040227
  Receipt Date: 20040216
  Transmission Date: 20041129
  Serious: Yes (Other)
  Sender: FDA-Public Use
  Company Number: GB-BRISTOL-MYERS SQUIBB COMPANY-12517074

PATIENT
  Age: 54 Year

DRUGS (6)
  1. MITOXANA [Suspect]
     Indication: NON-HODGKIN'S LYMPHOMA
  2. CARBOPLATIN [Concomitant]
  3. ETOPOSIDE [Concomitant]
  4. RITUXIMAB [Concomitant]
  5. NYSTATIN [Concomitant]
  6. ALLOPURINOL [Concomitant]

REACTIONS (1)
  - COGNITIVE DISORDER [None]
